FAERS Safety Report 7360646-8 (Version None)
Quarter: 2011Q1

REPORT INFORMATION
  Report Type: 
  Country: None (occurrence: None)
  Receive Date: 20110318
  Receipt Date: 20110307
  Transmission Date: 20110831
  Serious: Yes (Hospitalization, Other)
  Sender: FDA-Public Use
  Company Number: US-BAYER-201027724NA

PATIENT
  Sex: Female
  Weight: 145 kg

DRUGS (5)
  1. YAZ [Suspect]
     Indication: ORAL CONTRACEPTION
     Route: 048
     Dates: start: 20081201, end: 20090706
  2. SULFAMETHOXAZOLE AND TRIMETHOPRIM [Concomitant]
  3. IBUPROFEN [Concomitant]
     Dosage: UNK
     Dates: start: 20081201
  4. LISINOPRIL [Concomitant]
     Indication: HYPERTENSION
     Dosage: UNK
     Dates: start: 20081201, end: 20090701
  5. CIPROFLOXACIN [Concomitant]
     Dosage: UNK
     Dates: start: 20080701

REACTIONS (5)
  - PAIN [None]
  - CHOLECYSTITIS CHRONIC [None]
  - GALLBLADDER CHOLESTEROLOSIS [None]
  - GALLBLADDER DISORDER [None]
  - CHOLELITHIASIS [None]
